FAERS Safety Report 6518944-3 (Version None)
Quarter: 2009Q4

REPORT INFORMATION
  Report Type: 
  Country: None (occurrence: None)
  Receive Date: 20091228
  Receipt Date: 20091216
  Transmission Date: 20100525
  Serious: Yes (Hospitalization)
  Sender: FDA-Public Use
  Company Number: JP-BRISTOL-MYERS SQUIBB COMPANY-14908461

PATIENT
  Age: 65 Year
  Sex: Male
  Weight: 45 kg

DRUGS (6)
  1. ERBITUX [Suspect]
     Indication: RECTAL CANCER
     Dosage: INTERRUPTED AND RESTARTED ON 19FEB09 AT 200MG LAST INF:16APR09 21JAN09:500MG 03FEB:200MG
     Route: 042
     Dates: start: 20090121, end: 20090416
  2. IRINOTECAN HCL [Suspect]
     Indication: RECTAL CANCER
     Dosage: LAST INF:21JAN09
     Route: 042
     Dates: start: 20090121, end: 20090121
  3. POLARAMINE [Concomitant]
     Indication: PREMEDICATION
     Route: 042
     Dates: start: 20090121
  4. DEXART [Concomitant]
     Indication: PREMEDICATION
     Dosage: 21JAN09:4MG (1 IN 1 WK) 19FEB09:8MG (1 IN 1 WK)
     Route: 042
     Dates: start: 20090121
  5. NORVASC [Concomitant]
     Indication: HYPERTENSION
     Dosage: TABS
     Route: 048
     Dates: start: 20090121, end: 20090416
  6. KYTRIL [Concomitant]
     Indication: ANTIEMETIC SUPPORTIVE CARE
     Dates: start: 20090121, end: 20090416

REACTIONS (2)
  - PLATELET COUNT DECREASED [None]
  - WHITE BLOOD CELL COUNT DECREASED [None]
